FAERS Safety Report 21496034 (Version 6)
Quarter: 2023Q4

REPORT INFORMATION
  Report Type: Report from Study
  Country: US (occurrence: US)
  Receive Date: 20221022
  Receipt Date: 20231120
  Transmission Date: 20240110
  Serious: No
  Sender: FDA-Public Use
  Company Number: US-NOVARTISTESTPH-NVSC2022US238513

PATIENT
  Sex: Male

DRUGS (1)
  1. TABRECTA [Suspect]
     Active Substance: CAPMATINIB
     Indication: Product used for unknown indication
     Dosage: UNK
     Route: 065

REACTIONS (15)
  - Dysphagia [Recovering/Resolving]
  - Skin exfoliation [Recovered/Resolved]
  - Dry mouth [Recovering/Resolving]
  - Eating disorder [Recovering/Resolving]
  - Arthralgia [Unknown]
  - Myalgia [Unknown]
  - Hiccups [Unknown]
  - Nail ridging [Unknown]
  - Throat irritation [Unknown]
  - Mobility decreased [Unknown]
  - Dry skin [Recovered/Resolved]
  - Pruritus [Recovered/Resolved]
  - Bone pain [Unknown]
  - Wrong technique in product usage process [Unknown]
  - Product use complaint [Unknown]
